FAERS Safety Report 20364644 (Version 2)
Quarter: 2022Q1

REPORT INFORMATION
  Report Type: Spontaneous
  Country: PL (occurrence: PL)
  Receive Date: 20220122
  Receipt Date: 20220216
  Transmission Date: 20220423
  Serious: Yes (Hospitalization, Other)
  Sender: FDA-Public Use
  Company Number: PL-GILEAD-2022-0566261

PATIENT
  Age: 36 Year
  Sex: Male

DRUGS (3)
  1. BIKTARVY [Suspect]
     Active Substance: BICTEGRAVIR SODIUM\EMTRICITABINE\TENOFOVIR ALAFENAMIDE FUMARATE
     Indication: HIV infection
     Dosage: UNK
     Route: 065
     Dates: start: 20201113
  2. COMIRNATY [Concomitant]
     Active Substance: TOZINAMERAN
     Route: 030
  3. HUMAN RED BLOOD CELL [Concomitant]
     Active Substance: HUMAN RED BLOOD CELL
     Dosage: 4 UNITS
     Route: 042

REACTIONS (16)
  - Chest pain [Recovered/Resolved]
  - Acute kidney injury [Unknown]
  - Visual impairment [Recovered/Resolved]
  - Keratitis viral [Recovered/Resolved]
  - COVID-19 pneumonia [Unknown]
  - Rectal cancer [Unknown]
  - Pyrexia [Unknown]
  - Ascites [Unknown]
  - Sepsis [Unknown]
  - Chlamydial infection [Unknown]
  - Granuloma [Unknown]
  - Anaemia [Unknown]
  - Weight increased [Unknown]
  - Seborrhoeic dermatitis [Unknown]
  - Neoplasm [Unknown]
  - Diarrhoea [Unknown]

NARRATIVE: CASE EVENT DATE: 20210201
